FAERS Safety Report 6549347-3 (Version None)
Quarter: 2010Q1

REPORT INFORMATION
  Report Type: 
  Country: None (occurrence: None)
  Receive Date: 20100125
  Receipt Date: 20100113
  Transmission Date: 20100710
  Serious: Yes (Hospitalization)
  Sender: FDA-Public Use
  Company Number: PHHY2010NO02844

PATIENT

DRUGS (2)
  1. BEGRIVAC (NVD) [Suspect]
     Indication: IMMUNISATION
     Dosage: .5 ML
     Dates: start: 20091130, end: 20091130
  2. TEGRETOL [Suspect]
     Indication: EPILEPSY

REACTIONS (2)
  - CYANOSIS [None]
  - PULSE ABSENT [None]
